FAERS Safety Report 8614410-X (Version None)
Quarter: 2012Q3

REPORT INFORMATION
  Report Type: 
  Country: None (occurrence: None)
  Receive Date: 20120823
  Receipt Date: 20120817
  Transmission Date: 20120928
  Serious: Yes (Congenital Anomaly, Other)
  Sender: FDA-Public Use
  Company Number: NO-ASTRAZENECA-2012SE13578

PATIENT

DRUGS (2)
  1. ROPIVACAINE HYDROCHLORIDE [Suspect]
     Dosage: DOSAGE FORM: SOLUTION, 1MG/ML
     Route: 064
  2. FENTANYL CITRATE [Suspect]
     Dosage: DOSAGE FORM: SOLUTION, 2UG/ML
     Route: 064

REACTIONS (2)
  - FOETAL EXPOSURE DURING PREGNANCY [None]
  - HIP DYSPLASIA [None]
